FAERS Safety Report 10327817 (Version 1)
Quarter: 2014Q3

REPORT INFORMATION
  Report Type: Spontaneous
  Country: US (occurrence: US)
  Receive Date: 20140721
  Receipt Date: 20140721
  Transmission Date: 20150326
  Serious: Yes (Hospitalization, Other)
  Sender: FDA-Public Use
  Company Number: US-AMGEN INC.-USASP2014053229

PATIENT
  Age: 63 Year
  Sex: Female

DRUGS (2)
  1. PROLIA [Suspect]
     Active Substance: DENOSUMAB
     Indication: OSTEOPOROSIS POSTMENOPAUSAL
     Dosage: UNK
     Route: 065
     Dates: start: 20140626
  2. VITAMIN D                          /00107901/ [Concomitant]
     Active Substance: ERGOCALCIFEROL

REACTIONS (10)
  - Blood magnesium decreased [Unknown]
  - Blood albumin abnormal [Unknown]
  - Blood potassium decreased [Unknown]
  - Hypocalcaemia [Unknown]
  - Blood creatinine abnormal [Unknown]
  - Fall [Unknown]
  - Syncope [Unknown]
  - Injury [Unknown]
  - Muscle spasms [Unknown]
  - Electrocardiogram ST segment abnormal [Unknown]

NARRATIVE: CASE EVENT DATE: 20140627
